FAERS Safety Report 7499581-3 (Version None)
Quarter: 2011Q2

REPORT INFORMATION
  Report Type: 
  Country: None (occurrence: None)
  Receive Date: 20110524
  Receipt Date: 20110519
  Transmission Date: 20111010
  Serious: Yes (Death, Hospitalization)
  Sender: FDA-Public Use
  Company Number: CO-PFIZER INC-2011080791

PATIENT
  Age: 72 Year
  Sex: Male

DRUGS (8)
  1. FUROSEMIDE [Concomitant]
     Dosage: 40 MG, 2X/DAY
  2. ACETYLSALICYLIC ACID [Concomitant]
  3. GLIBENCLAMIDE [Concomitant]
     Dosage: 5 MG, 2X/DAY
  4. AMIODARONE [Concomitant]
     Dosage: UNK
  5. SPIRONOLACTONE [Concomitant]
     Dosage: UNK
  6. LIPITOR [Suspect]
     Indication: DYSLIPIDAEMIA
     Dosage: 10 MG, 1X/DAY
     Route: 048
     Dates: start: 20041201
  7. CARVEDILOL [Concomitant]
     Dosage: UNK
  8. ENALAPRIL [Concomitant]
     Dosage: 5 MG, 2X/DAY

REACTIONS (8)
  - CARDIAC FAILURE [None]
  - DYSPNOEA [None]
  - DIARRHOEA [None]
  - RESPIRATORY FAILURE [None]
  - RENAL FAILURE CHRONIC [None]
  - MULTI-ORGAN FAILURE [None]
  - MYALGIA [None]
  - ASTHENIA [None]
